FAERS Safety Report 5150028-1 (Version None)
Quarter: 2006Q4

REPORT INFORMATION
  Report Type: 
  Country: None (occurrence: None)
  Receive Date: 20060918
  Receipt Date: 20060504
  Transmission Date: 20070319
  Serious: Yes (Other)
  Sender: FDA-Public Use
  Company Number: US-JNJFOC-20060501659

PATIENT
  Age: 47 Year
  Sex: Female
  Weight: 113.3993 kg

DRUGS (3)
  1. TOPAMAX [Suspect]
     Indication: FIBROMYALGIA
     Dosage: 25 MG, IN 1 DAY, ORAL
     Route: 048
     Dates: start: 20060409, end: 20060419
  2. ANTIDEPRESSANT (ANTIDEPRESSANTS) [Suspect]
     Indication: DEPRESSION
  3. PAIN MEDICATION () ANALGESICS [Concomitant]

REACTIONS (12)
  - ABNORMAL SENSATION IN EYE [None]
  - BLEPHAROSPASM [None]
  - DEPRESSION [None]
  - DIZZINESS [None]
  - DRUG INTERACTION [None]
  - HALLUCINATION, VISUAL [None]
  - HEADACHE [None]
  - INSOMNIA [None]
  - MENTAL IMPAIRMENT [None]
  - SENSORY DISTURBANCE [None]
  - TREMOR [None]
  - VISUAL DISTURBANCE [None]
